FAERS Safety Report 14254800 (Version 1)
Quarter: 2017Q4

REPORT INFORMATION
  Report Type: Spontaneous
  Country: US (occurrence: None)
  Receive Date: 20171205
  Receipt Date: 20171205
  Transmission Date: 20180321
  Serious: Yes (Other)
  Sender: FDA-Public Use
  Company Number: None

PATIENT
  Age: 66 Year
  Sex: Male

DRUGS (10)
  1. PENICILLIN [Concomitant]
     Active Substance: PENICILLIN
  2. TRIBENZOR40 [Concomitant]
  3. LONSURF [Suspect]
     Active Substance: TIPIRACIL HYDROCHLORIDE\TRIFLURIDINE
     Indication: COLON CANCER
     Route: 048
     Dates: start: 20171012
  4. PROBIOTIC [Concomitant]
     Active Substance: PROBIOTICS NOS
  5. ELIQUIS [Concomitant]
     Active Substance: APIXABAN
  6. IRON [Concomitant]
     Active Substance: IRON
  7. FLUCONAZOLE. [Concomitant]
     Active Substance: FLUCONAZOLE
  8. PROTONIX [Concomitant]
     Active Substance: PANTOPRAZOLE SODIUM
  9. CITALOPRAM [Concomitant]
     Active Substance: CITALOPRAM HYDROBROMIDE
  10. PANTOPRAZOLE [Concomitant]
     Active Substance: PANTOPRAZOLE

REACTIONS (3)
  - Full blood count decreased [None]
  - Nausea [None]
  - Fatigue [None]

NARRATIVE: CASE EVENT DATE: 2017
